FAERS Safety Report 7719097-6 (Version None)
Quarter: 2011Q3

REPORT INFORMATION
  Report Type: 
  Country: None (occurrence: None)
  Receive Date: 20110830
  Receipt Date: 20110809
  Transmission Date: 20111222
  Serious: Yes (Hospitalization)
  Sender: FDA-Public Use
  Company Number: US-US-EMD SERONO, INC.-7066250

PATIENT
  Sex: Male

DRUGS (4)
  1. PREDNISONE [Concomitant]
     Indication: RENAL DISORDER
     Route: 042
     Dates: start: 19940101
  2. SAIZEN [Suspect]
     Route: 058
     Dates: start: 20011015
  3. SAIZEN [Suspect]
     Route: 058
     Dates: start: 20010901, end: 20011015
  4. SAIZEN [Suspect]
     Indication: PRODUCT USED FOR UNKNOWN INDICATION
     Route: 058
     Dates: start: 20010725, end: 20010801

REACTIONS (8)
  - MALNUTRITION [None]
  - PYREXIA [None]
  - INFECTION [None]
  - HYPERTENSION [None]
  - CENTRAL VENOUS CATHETERISATION [None]
  - ANAEMIA [None]
  - NEPHROTIC SYNDROME [None]
  - FOCAL SEGMENTAL GLOMERULOSCLEROSIS [None]
